FAERS Safety Report 18354348 (Version 1)
Quarter: 2020Q4

REPORT INFORMATION
  Report Type: Spontaneous
  Country: US (occurrence: US)
  Receive Date: 20201006
  Receipt Date: 20201006
  Transmission Date: 20210114
  Serious: No
  Sender: FDA-Public Use
  Company Number: None

PATIENT
  Age: 71 Year
  Sex: Male
  Weight: 78.3 kg

DRUGS (11)
  1. JAKAFI [Suspect]
     Active Substance: RUXOLITINIB
     Indication: POLYCYTHAEMIA VERA
     Route: 048
  2. NORVASC [Concomitant]
     Active Substance: AMLODIPINE BESYLATE
  3. FENTANYL. [Concomitant]
     Active Substance: FENTANYL
  4. ELIQUIS [Concomitant]
     Active Substance: APIXABAN
  5. PERCOCET [Concomitant]
     Active Substance: ACETAMINOPHEN\OXYCODONE HYDROCHLORIDE
  6. PRAMIPEXOLE. [Concomitant]
     Active Substance: PRAMIPEXOLE
  7. AMLODIPINE [Concomitant]
     Active Substance: AMLODIPINE BESYLATE
  8. ATIVAN [Concomitant]
     Active Substance: LORAZEPAM
  9. DURAGESIC [Concomitant]
     Active Substance: FENTANYL
  10. ASPIRIN. [Concomitant]
     Active Substance: ASPIRIN
  11. SHINGRIX [Concomitant]
     Active Substance: RECOMBINANT VARICELLA ZOSTER VIRUS (VZV) GLYCOPROTEIN E

REACTIONS (1)
  - Weight decreased [None]

NARRATIVE: CASE EVENT DATE: 20201006
